FAERS Safety Report 18134622 (Version 1)
Quarter: 2020Q3

REPORT INFORMATION
  Report Type: Spontaneous
  Country: US (occurrence: US)
  Receive Date: 20200810
  Receipt Date: 20200810
  Transmission Date: 20201103
  Serious: Yes (Death)
  Sender: FDA-Public Use
  Company Number: None

PATIENT
  Age: 73 Year
  Sex: Male

DRUGS (2)
  1. TEMOZOLOMIDE 180 [Suspect]
     Active Substance: TEMOZOLOMIDE
     Indication: BRAIN NEOPLASM MALIGNANT
     Dosage: OTHER FREQUENCY:QHS X 5 NIGHTS ;?
     Route: 048
  2. TEMOZOLOMIDE 140 [Suspect]
     Active Substance: TEMOZOLOMIDE
     Dosage: QHS X 5 NIGHTS
     Route: 048

REACTIONS (1)
  - Disease complication [None]
